FAERS Safety Report 7711679-0 (Version None)
Quarter: 2011Q3

REPORT INFORMATION
  Report Type: 
  Country: None (occurrence: None)
  Receive Date: 20110826
  Receipt Date: 20110726
  Transmission Date: 20111222
  Serious: No
  Sender: FDA-Public Use
  Company Number: US-BRISTOL-MYERS SQUIBB COMPANY-15925753

PATIENT
  Age: 85 Year
  Sex: Female

DRUGS (1)
  1. ONGLYZA [Suspect]
     Dates: start: 20110705

REACTIONS (1)
  - HYPONATRAEMIA [None]
